FAERS Safety Report 23829768 (Version 1)
Quarter: 2024Q2

REPORT INFORMATION
  Report Type: Spontaneous
  Country: US (occurrence: US)
  Receive Date: 20240508
  Receipt Date: 20240508
  Transmission Date: 20240715
  Serious: No
  Sender: FDA-Public Use
  Company Number: US-BRISTOL-MYERS SQUIBB COMPANY-2024-071283

PATIENT
  Age: 80 Year
  Sex: Male

DRUGS (1)
  1. REVLIMID [Suspect]
     Active Substance: LENALIDOMIDE
     Indication: Extranodal marginal zone B-cell lymphoma (MALT type)
     Dosage: FREQUENCY: DAYS 1 - 21 THEN 7 DAYS OFF
     Route: 048
     Dates: start: 202404, end: 20240429

REACTIONS (5)
  - Fatigue [Unknown]
  - Rash [Unknown]
  - Dyspnoea [Unknown]
  - Abdominal distension [Unknown]
  - Tenderness [Unknown]

NARRATIVE: CASE EVENT DATE: 20240401
